FAERS Safety Report 10932562 (Version 1)
Quarter: 2015Q1

REPORT INFORMATION
  Report Type: Spontaneous
  Country: US (occurrence: None)
  Receive Date: 20150319
  Receipt Date: 20150319
  Transmission Date: 20150721
  Serious: Yes (Hospitalization)
  Sender: FDA-Public Use
  Company Number: None

PATIENT
  Age: 66 Year
  Sex: Male
  Weight: 88 kg

DRUGS (13)
  1. IBUPROFEN (ADVIL) [Concomitant]
  2. TERAZOSIN (HYTRIN) [Concomitant]
  3. PROSCAR [Concomitant]
     Active Substance: FINASTERIDE
  4. DAILY MULTIPLE VITAMINS [Concomitant]
  5. CLOPIDOGREL [Suspect]
     Active Substance: CLOPIDOGREL BISULFATE
     Indication: STENT PLACEMENT
     Dosage: 1
     Route: 048
  6. METOPROLOL (TOPROL XL) [Concomitant]
  7. VITAMIN D, CHOLECALCIFEROL [Concomitant]
  8. FOLIC ACID-VIT B6-VIT B-12 [Concomitant]
  9. ALLOPURINOL (ZYLOPRIM) [Concomitant]
  10. ASPIRIN 325 MG [Suspect]
     Active Substance: ASPIRIN
     Indication: CORONARY ARTERY DISEASE
     Dosage: 1
     Route: 048
  11. CIALIS [Concomitant]
     Active Substance: TADALAFIL
  12. PREGABALIN (LYRICA) [Concomitant]
  13. SIMVASTATIN (ZOCOR) [Concomitant]

REACTIONS (11)
  - Hyperhidrosis [None]
  - Dyspnoea exertional [None]
  - Hypersomnia [None]
  - Chest pain [None]
  - Dizziness postural [None]
  - Cold sweat [None]
  - Pallor [None]
  - Palpitations [None]
  - Asthenia [None]
  - Dizziness [None]
  - Faeces discoloured [None]

NARRATIVE: CASE EVENT DATE: 20140825
